FAERS Safety Report 19468382 (Version 2)
Quarter: 2021Q4

REPORT INFORMATION
  Report Type: Spontaneous
  Country: US (occurrence: US)
  Receive Date: 20210628
  Receipt Date: 20211231
  Transmission Date: 20220303
  Serious: Yes (Other)
  Sender: FDA-Public Use
  Company Number: US-UCBSA-2021029905

PATIENT
  Age: 76 Year
  Sex: Female

DRUGS (2)
  1. CIMZIA [Suspect]
     Active Substance: CERTOLIZUMAB PEGOL
     Indication: Rheumatoid arthritis
     Dosage: 200 MILLIGRAM, EV 2 WEEKS(QOW)
     Route: 058
     Dates: start: 2015
  2. NEOSPORIN [Concomitant]
     Active Substance: BACITRACIN ZINC\NEOMYCIN SULFATE\POLYMYXIN B SULFATE
     Indication: Product used for unknown indication

REACTIONS (7)
  - Hip surgery [Unknown]
  - Impaired healing [Unknown]
  - Back pain [Not Recovered/Not Resolved]
  - Nasal discomfort [Unknown]
  - Dry eye [Unknown]
  - Dry mouth [Unknown]
  - Pain [Unknown]

NARRATIVE: CASE EVENT DATE: 20210401
